FAERS Safety Report 7329769-3 (Version None)
Quarter: 2011Q1

REPORT INFORMATION
  Report Type: 
  Country: None (occurrence: None)
  Receive Date: 20110223
  Receipt Date: 20110208
  Transmission Date: 20110831
  Serious: Yes (Other)
  Sender: FDA-Public Use
  Company Number: 2011SP000386

PATIENT
  Age: 58 Year
  Sex: Female

DRUGS (6)
  1. KLACID /00984601/ [Concomitant]
  2. PROFLOX /01453201/ [Concomitant]
  3. PULMICORT [Concomitant]
  4. OMEPRAZOLE [Concomitant]
  5. ALVESCO [Suspect]
     Indication: RESPIRATORY FAILURE
     Dosage: 320 UG;QD; INHALATION
     Route: 055
  6. ZAMENE [Concomitant]

REACTIONS (8)
  - NEUTROPHIL COUNT INCREASED [None]
  - OFF LABEL USE [None]
  - BRONCHOSPASM PARADOXICAL [None]
  - LYMPHOCYTE COUNT DECREASED [None]
  - INTERNATIONAL NORMALISED RATIO DECREASED [None]
  - MEAN CELL HAEMOGLOBIN DECREASED [None]
  - WHITE BLOOD CELL COUNT INCREASED [None]
  - PLATELET COUNT INCREASED [None]
